FAERS Safety Report 24250113 (Version 1)
Quarter: 2024Q3

REPORT INFORMATION
  Report Type: Spontaneous
  Country: CA (occurrence: CA)
  Receive Date: 20240826
  Receipt Date: 20240826
  Transmission Date: 20241017
  Serious: Yes (Other)
  Sender: DR REDDYS
  Company Number: None

PATIENT
  Age: 76 Year
  Sex: Female
  Weight: 62 kg

DRUGS (1)
  1. DAPTOMYCIN [Suspect]
     Active Substance: DAPTOMYCIN
     Indication: Staphylococcal mediastinitis
     Route: 042

REACTIONS (5)
  - Eosinophil count increased [Recovering/Resolving]
  - Hyperthermia [Recovering/Resolving]
  - Lung infiltration [Recovering/Resolving]
  - Respiratory failure [Recovering/Resolving]
  - White blood cell count increased [Recovering/Resolving]
